FAERS Safety Report 9478155 (Version 1)
Quarter: 2013Q3

REPORT INFORMATION
  Report Type: Spontaneous
  Country: US (occurrence: None)
  Receive Date: 20130815
  Receipt Date: 20130815
  Transmission Date: 20140515
  Serious: Yes (Other)
  Sender: FDA-Public Use
  Company Number: 2013037464

PATIENT
  Sex: Male
  Weight: 80.74 kg

DRUGS (7)
  1. ZEMAIRA (ALPHA-1 PROTEINASE INHIBITOR (HUMAN)) [Suspect]
     Indication: ALPHA-1 ANTI-TRYPSIN DEFICIENCY
     Dosage: (60 MG/KG 1X/WEEK, 974 MG/VIAL; 0.08 ML/KG/MIN (6.6 ML/MIN) INTRAVENOUS (NOT OTHERWISE SPECIFIED)
     Route: 042
  2. DIPHENHYDRAMINE (DIPHENHYDRAMINE) [Concomitant]
  3. SODIUM CHLORIDE [Concomitant]
  4. EPIPEN (EPINEPHRINE) [Concomitant]
  5. OXYGEN (OXYGEN) [Concomitant]
  6. COUMADIN (WARFARIN SODIUM) [Concomitant]
  7. ADVAIR (SERETIDE /01420901/) [Concomitant]

REACTIONS (4)
  - Dizziness [None]
  - Pyrexia [None]
  - Vomiting [None]
  - Nausea [None]
